FAERS Safety Report 25029019 (Version 5)
Quarter: 2025Q2

REPORT INFORMATION
  Report Type: Report from Study
  Country: RU (occurrence: RU)
  Receive Date: 20250303
  Receipt Date: 20250422
  Transmission Date: 20250717
  Serious: Yes (Other)
  Sender: NOVARTIS
  Company Number: RU-002147023-NVSC2025RU034191

PATIENT
  Age: 2 Year
  Sex: Male
  Weight: 10 kg

DRUGS (3)
  1. ZOLGENSMA [Suspect]
     Active Substance: ONASEMNOGENE ABEPARVOVEC-XIOI
     Indication: Spinal muscular atrophy
     Route: 041
     Dates: start: 20241224, end: 20241224
  2. PREDNISOLONE [Concomitant]
     Active Substance: PREDNISOLONE
     Indication: Product used for unknown indication
     Dosage: 20 ML, QD (IN THE MORNING AFTER A MEAL)
     Route: 065
     Dates: start: 20241223
  3. OMEPRAZOLE [Concomitant]
     Active Substance: OMEPRAZOLE
     Indication: Product used for unknown indication
     Dosage: 10 ML, QD (BEFORE BED)
     Route: 065
     Dates: start: 20241223

REACTIONS (5)
  - Blood test abnormal [Not Recovered/Not Resolved]
  - Alanine aminotransferase increased [Unknown]
  - Blood creatinine decreased [Unknown]
  - Aspartate aminotransferase increased [Unknown]
  - Gamma-glutamyltransferase increased [Unknown]

NARRATIVE: CASE EVENT DATE: 20241230
